FAERS Safety Report 5205068-0 (Version None)
Quarter: 2007Q1

REPORT INFORMATION
  Report Type: 
  Country: None (occurrence: None)
  Receive Date: 20070110
  Receipt Date: 20061016
  Transmission Date: 20070707
  Serious: No
  Sender: FDA-Public Use
  Company Number: US-BRISTOL-MYERS SQUIBB COMPANY-13546171

PATIENT
  Age: 42 Year
  Sex: Female

DRUGS (3)
  1. ABILIFY [Suspect]
     Indication: SCHIZOPHRENIA
     Dosage: SUSPECT MEDICATION: ABILIFY WAS INCREASED TO 20MG ORAL ON 3OCT2006
     Route: 048
     Dates: start: 20060329
  2. EFFEXOR XR [Concomitant]
     Indication: AFFECTIVE DISORDER
     Route: 048
  3. TOPAMAX [Concomitant]
     Indication: AFFECTIVE DISORDER
     Route: 048

REACTIONS (1)
  - ALOPECIA [None]
